FAERS Safety Report 21004270 (Version 1)
Quarter: 2022Q2

REPORT INFORMATION
  Report Type: Report from Study
  Country: CA (occurrence: CA)
  Receive Date: 20220624
  Receipt Date: 20220624
  Transmission Date: 20220721
  Serious: Yes (Hospitalization)
  Sender: FDA-Public Use
  Company Number: CA-GLAXOSMITHKLINE-CA2022091066

PATIENT

DRUGS (1)
  1. MEPOLIZUMAB [Suspect]
     Active Substance: MEPOLIZUMAB
     Indication: Asthma
     Dosage: 100 MG, Z, (EVERY 4 WEEKS)
     Route: 058
     Dates: start: 20191001

REACTIONS (5)
  - Chronic obstructive pulmonary disease [Unknown]
  - Haemorrhoidal haemorrhage [Unknown]
  - Malaise [Unknown]
  - Vomiting [Unknown]
  - Colonoscopy [Unknown]

NARRATIVE: CASE EVENT DATE: 20220609
